FAERS Safety Report 15500069 (Version 1)
Quarter: 2018Q4

REPORT INFORMATION
  Report Type: Spontaneous
  Country: JP (occurrence: JP)
  Receive Date: 20181015
  Receipt Date: 20181015
  Transmission Date: 20190205
  Serious: Yes (Other)
  Sender: FDA-Public Use
  Company Number: JP-HQ SPECIALTY-JP-2018INT000195

PATIENT

DRUGS (8)
  1. GEMCITABINE [Suspect]
     Active Substance: GEMCITABINE\GEMCITABINE HYDROCHLORIDE
     Indication: METASTASES TO LIVER
  2. VINORELBINE [Suspect]
     Active Substance: VINORELBINE\VINORELBINE TARTRATE
     Indication: BREAST CANCER METASTATIC
     Dosage: UNK
  3. PACLITAXEL. [Suspect]
     Active Substance: PACLITAXEL
     Indication: BREAST CANCER METASTATIC
     Dosage: UNK
  4. ERIBULIN [Suspect]
     Active Substance: ERIBULIN
     Indication: METASTASES TO LIVER
  5. GEMCITABINE [Suspect]
     Active Substance: GEMCITABINE\GEMCITABINE HYDROCHLORIDE
     Indication: BREAST CANCER METASTATIC
     Dosage: UNK
  6. ERIBULIN [Suspect]
     Active Substance: ERIBULIN
     Indication: BREAST CANCER METASTATIC
     Dosage: UNK
  7. PACLITAXEL. [Suspect]
     Active Substance: PACLITAXEL
     Indication: METASTASES TO LIVER
  8. VINORELBINE [Suspect]
     Active Substance: VINORELBINE\VINORELBINE TARTRATE
     Indication: METASTASES TO LIVER

REACTIONS (1)
  - Pseudocirrhosis [Unknown]
